FAERS Safety Report 5950997-3 (Version None)
Quarter: 2008Q4

REPORT INFORMATION
  Report Type: 
  Country: None (occurrence: None)
  Receive Date: 20081110
  Receipt Date: 20081028
  Transmission Date: 20090506
  Serious: Yes (Hospitalization)
  Sender: FDA-Public Use
  Company Number: 231250K08USA

PATIENT
  Age: 52 Year
  Sex: Female

DRUGS (5)
  1. REBIF [Suspect]
     Indication: MULTIPLE SCLEROSIS
     Dosage: 44 MCG, 3 IN 1 WEEKS, SUBCUTANEOUS
     Route: 058
     Dates: start: 20060501
  2. DITROPEN (OXYBUTYNIN) [Concomitant]
  3. DETROL [Concomitant]
  4. ZEBETA [Concomitant]
  5. ESZOPICLONE( ESZOPICLONE) [Concomitant]

REACTIONS (11)
  - CONFUSIONAL STATE [None]
  - DEHYDRATION [None]
  - HYPOAESTHESIA [None]
  - HYPOAESTHESIA FACIAL [None]
  - HYPOTHYROIDISM [None]
  - INJECTION SITE ERYTHEMA [None]
  - INJECTION SITE PAIN [None]
  - INJECTION SITE REACTION [None]
  - INJECTION SITE SWELLING [None]
  - URINARY TRACT INFECTION [None]
  - VITAMIN D ABNORMAL [None]
